FAERS Safety Report 4476582-0 (Version None)
Quarter: 2004Q4

REPORT INFORMATION
  Report Type: 
  Country: None (occurrence: None)
  Receive Date: 20041013
  Receipt Date: 20040929
  Transmission Date: 20050328
  Serious: Yes (Other)
  Sender: FDA-Public Use
  Company Number: USA040979691

PATIENT
  Age: 26 Year
  Sex: Female
  Weight: 61 kg

DRUGS (6)
  1. HUMULIN R [Suspect]
     Indication: DIABETES MELLITUS
     Dates: end: 19990101
  2. HUMALOG [Suspect]
     Indication: DIABETES MELLITUS
     Dates: start: 19990101
  3. HUMULIN L [Suspect]
     Indication: DIABETES MELLITUS
     Dates: end: 19990101
  4. INSULIN [Suspect]
     Indication: DIABETES MELLITUS
     Dates: start: 19640101
  5. LANTUS [Concomitant]
  6. ALTACE [Concomitant]

REACTIONS (11)
  - BLOOD GLUCOSE DECREASED [None]
  - BLOOD GLUCOSE INCREASED [None]
  - BLOOD POTASSIUM INCREASED [None]
  - CAESAREAN SECTION [None]
  - DECREASED APPETITE [None]
  - DRUG EXPOSURE DURING PREGNANCY [None]
  - INJECTION SITE SCAR [None]
  - POST PROCEDURAL HAEMORRHAGE [None]
  - PREGNANCY [None]
  - RENAL FAILURE [None]
  - URINARY TRACT INFECTION [None]
